FAERS Safety Report 15871111 (Version 4)
Quarter: 2019Q3

REPORT INFORMATION
  Report Type: Report from Study
  Country: None (occurrence: BR)
  Receive Date: 20190126
  Receipt Date: 20190702
  Transmission Date: 20191004
  Serious: Yes (Other)
  Sender: FDA-Public Use
  Company Number: BR-ABBVIE-19K-020-2632529-00

PATIENT
  Age: 51 Year
  Sex: Female
  Weight: 70 kg

DRUGS (2)
  1. HUMIRA [Suspect]
     Active Substance: ADALIMUMAB
     Indication: PSORIASIS
     Route: 058
     Dates: start: 20180520, end: 20181108
  2. HUMIRA [Suspect]
     Active Substance: ADALIMUMAB
     Route: 058
     Dates: start: 20190407

REACTIONS (12)
  - Psoriasis [Not Recovered/Not Resolved]
  - Postoperative wound complication [Not Recovered/Not Resolved]
  - Therapeutic response unexpected [Unknown]
  - Wound [Unknown]
  - Umbilical hernia [Recovering/Resolving]
  - Post procedural inflammation [Not Recovered/Not Resolved]
  - Gait disturbance [Unknown]
  - Drug ineffective [Unknown]
  - Adverse event [Unknown]
  - Pre-existing condition improved [Unknown]
  - Contusion [Recovering/Resolving]
  - Skin fissures [Unknown]

NARRATIVE: CASE EVENT DATE: 20181201
